FAERS Safety Report 6310925-8 (Version None)
Quarter: 2009Q3

REPORT INFORMATION
  Report Type: 
  Country: None (occurrence: None)
  Receive Date: 20090812
  Receipt Date: 20090806
  Transmission Date: 20100115
  Serious: Yes (Hospitalization)
  Sender: FDA-Public Use
  Company Number: URSO-2009-072 FUP#1

PATIENT
  Age: 71 Year
  Sex: Female

DRUGS (7)
  1. URSO 250 [Suspect]
     Indication: ALCOHOLIC LIVER DISEASE
     Dosage: 300MG ORAL
     Route: 048
     Dates: start: 20090414, end: 20090514
  2. ALLORIN (ALLOPURINOL) [Concomitant]
  3. CONIEL (BENIDIPINE HYDROCHLORIDE) [Concomitant]
  4. ZESTRIL [Concomitant]
  5. TOWAMIN (ATENOLOL) [Concomitant]
  6. MASHI-NIN-GAN [Concomitant]
  7. DAIO-KANZO-TO [Concomitant]

REACTIONS (4)
  - ALANINE AMINOTRANSFERASE INCREASED [None]
  - ASPARTATE AMINOTRANSFERASE INCREASED [None]
  - DECREASED APPETITE [None]
  - HEPATIC FUNCTION ABNORMAL [None]
